FAERS Safety Report 10738312 (Version 1)
Quarter: 2015Q1

REPORT INFORMATION
  Report Type: Spontaneous
  Country: US (occurrence: None)
  Receive Date: 20150123
  Receipt Date: 20150123
  Transmission Date: 20150721
  Serious: Yes (Other)
  Sender: FDA-Public Use
  Company Number: None

PATIENT
  Age: 49 Year
  Sex: Female

DRUGS (9)
  1. AMITIZA [Concomitant]
     Active Substance: LUBIPROSTONE
  2. MORPHINE [Concomitant]
     Active Substance: MORPHINE
  3. ONDANSETRON [Concomitant]
     Active Substance: ONDANSETRON
  4. AMIODIPINE [Concomitant]
  5. HARVONI [Suspect]
     Active Substance: LEDIPASVIR\SOFOSBUVIR
     Indication: HEPATITIS C
     Dates: start: 20141215
  6. NITROFURANTOIN. [Concomitant]
     Active Substance: NITROFURANTOIN
  7. TIZANIDINE (TIZANIDINE) [Concomitant]
     Active Substance: TIZANIDINE
     Indication: HEPATITIS C
     Route: 048
     Dates: start: 20141215
  8. LOSARTAN [Concomitant]
     Active Substance: LOSARTAN
  9. ALPRAZOLAM. [Concomitant]
     Active Substance: ALPRAZOLAM

REACTIONS (2)
  - Peripheral swelling [None]
  - Local swelling [None]

NARRATIVE: CASE EVENT DATE: 20150115
